FAERS Safety Report 8815767 (Version 1)
Quarter: 2012Q4

REPORT INFORMATION
  Report Type: 
  Country: FR (occurrence: FR)
  Receive Date: 20120928
  Receipt Date: 20120928
  Transmission Date: 20130627
  Serious: Yes (Hospitalization)
  Sender: FDA-Public Use
  Company Number: FR-B.I. PHARMACEUTICALS,INC./RIDGEFIELD-2012-FF-01306FF

PATIENT
  Age: 81 Year
  Sex: Female

DRUGS (2)
  1. PRADAXA [Suspect]
     Indication: ATRIAL FIBRILLATION
     Dosage: 220 mg
     Route: 048
     Dates: start: 201209, end: 20120918
  2. FLECAINE [Concomitant]
     Dates: start: 20120914

REACTIONS (2)
  - Hepatocellular injury [Recovered/Resolved]
  - Atrial fibrillation [Unknown]
